FAERS Safety Report 15691494 (Version 1)
Quarter: 2018Q4

REPORT INFORMATION
  Report Type: Spontaneous
  Country: US (occurrence: US)
  Receive Date: 20181205
  Receipt Date: 20181205
  Transmission Date: 20190205
  Serious: Yes (Other)
  Sender: FDA-Public Use
  Company Number: US-BAYER-2018-224531

PATIENT
  Age: 17 Year
  Sex: Female

DRUGS (1)
  1. PARACETAMOL [Suspect]
     Active Substance: ACETAMINOPHEN
     Dosage: UNK

REACTIONS (7)
  - Nausea [None]
  - Toxicity to various agents [None]
  - Transaminases increased [Recovering/Resolving]
  - Overdose [None]
  - Shock [None]
  - Dyspnoea [None]
  - Pruritus [None]
